FAERS Safety Report 23951195 (Version 1)
Quarter: 2024Q2

REPORT INFORMATION
  Report Type: Spontaneous
  Country: US (occurrence: None)
  Receive Date: 20240607
  Receipt Date: 20240607
  Transmission Date: 20240716
  Serious: Yes (Disabling)
  Sender: FDA-Public Use
  Company Number: None

PATIENT
  Age: 69 Year
  Sex: Male
  Weight: 87.75 kg

DRUGS (1)
  1. AMIODARONE [Suspect]
     Active Substance: AMIODARONE
     Indication: Atrial fibrillation
     Dates: start: 20180510, end: 20200221

REACTIONS (4)
  - COVID-19 [None]
  - Pulmonary fibrosis [None]
  - Lung neoplasm malignant [None]
  - Emphysema [None]

NARRATIVE: CASE EVENT DATE: 20200212
